FAERS Safety Report 14077141 (Version 3)
Quarter: 2017Q4

REPORT INFORMATION
  Report Type: Report from Study
  Country: DE (occurrence: DE)
  Receive Date: 20171012
  Receipt Date: 20171030
  Transmission Date: 20180321
  Serious: Yes (Hospitalization)
  Sender: FDA-Public Use
  Company Number: DE-ROCHE-2005404

PATIENT
  Age: 69 Year
  Sex: Female
  Weight: 62 kg

DRUGS (28)
  1. PIXANTRONE [Suspect]
     Active Substance: PIXANTRONE
     Dosage: CYCLE 2
     Route: 042
     Dates: start: 20161227
  2. ATOSIL [Concomitant]
     Active Substance: PROMETHAZINE HYDROCHLORIDE
     Dosage: PER DAY
     Route: 065
     Dates: start: 20170807
  3. OBINUTUZUMAB. [Suspect]
     Active Substance: OBINUTUZUMAB
     Dosage: CYCLE 4
     Route: 042
     Dates: start: 20170213
  4. PIXANTRONE [Suspect]
     Active Substance: PIXANTRONE
     Dosage: CYCLE 2
     Route: 042
     Dates: start: 20170102
  5. METOPROLOL. [Concomitant]
     Active Substance: METOPROLOL
     Route: 065
  6. PIXANTRONE [Suspect]
     Active Substance: PIXANTRONE
     Dosage: CYCLE 3
     Route: 042
     Dates: start: 20170123
  7. QUETIAPIN [Concomitant]
     Active Substance: QUETIAPINE
     Route: 065
     Dates: start: 20170807
  8. PIXANTRONE [Suspect]
     Active Substance: PIXANTRONE
     Dosage: CYCLE 4
     Route: 042
     Dates: start: 20170213
  9. PIXANTRONE [Suspect]
     Active Substance: PIXANTRONE
     Dosage: CYCLE 4
     Route: 042
     Dates: start: 20170220
  10. PIXANTRONE [Suspect]
     Active Substance: PIXANTRONE
     Dosage: CYCLE 4
     Route: 042
     Dates: start: 20170228
  11. PIXANTRONE [Suspect]
     Active Substance: PIXANTRONE
     Dosage: CYCLE 5
     Route: 042
     Dates: start: 20170327
  12. ATOSIL [Concomitant]
     Active Substance: PROMETHAZINE HYDROCHLORIDE
     Route: 065
  13. OBINUTUZUMAB. [Suspect]
     Active Substance: OBINUTUZUMAB
     Dosage: CYCLE 1
     Route: 042
     Dates: start: 20161128
  14. PIXANTRONE [Suspect]
     Active Substance: PIXANTRONE
     Indication: B-CELL LYMPHOMA RECURRENT
     Dosage: CYCLE 1
     Route: 042
     Dates: start: 20161121
  15. PIXANTRONE [Suspect]
     Active Substance: PIXANTRONE
     Dosage: CYCLE 2
     Route: 042
     Dates: start: 20161219
  16. CYMBALTA [Concomitant]
     Active Substance: DULOXETINE HYDROCHLORIDE
     Route: 065
     Dates: start: 20170807
  17. OBINUTUZUMAB. [Suspect]
     Active Substance: OBINUTUZUMAB
     Indication: B-CELL LYMPHOMA RECURRENT
     Dosage: CYCLE 1
     Route: 042
     Dates: start: 20161121
  18. OBINUTUZUMAB. [Suspect]
     Active Substance: OBINUTUZUMAB
     Dosage: CYCLE 1
     Route: 042
     Dates: start: 20161122
  19. OBINUTUZUMAB. [Suspect]
     Active Substance: OBINUTUZUMAB
     Dosage: CYCLE 1
     Route: 042
     Dates: start: 20161205
  20. OBINUTUZUMAB. [Suspect]
     Active Substance: OBINUTUZUMAB
     Dosage: CYCLE 3
     Route: 042
     Dates: start: 20160116
  21. PIXANTRONE [Suspect]
     Active Substance: PIXANTRONE
     Dosage: CYCLE 3
     Route: 042
     Dates: start: 20160116
  22. PIXANTRONE [Suspect]
     Active Substance: PIXANTRONE
     Dosage: CYCLE 6
     Route: 042
     Dates: start: 20170418
  23. PIXANTRONE [Suspect]
     Active Substance: PIXANTRONE
     Dosage: CYCLE 6?MOST RECENT DOSE (52.2 MG): 02/MAY/2017?50 MG/M2 ON DAY 1,8,15 OF EACH 28 DAY CYCLE, AS PER
     Route: 042
     Dates: start: 20170424
  24. OBINUTUZUMAB. [Suspect]
     Active Substance: OBINUTUZUMAB
     Dosage: CYCLE 2
     Route: 042
     Dates: start: 20161219
  25. PIXANTRONE [Suspect]
     Active Substance: PIXANTRONE
     Dosage: CYCLE 5
     Route: 042
     Dates: start: 20170320
  26. OBINUTUZUMAB. [Suspect]
     Active Substance: OBINUTUZUMAB
     Dosage: CYCLE 5?MOST RECENT DOSE (1000 MG): 18/APR/2017?OBINUTUZUMAB 1000 MG FLAT DOSE ON DAY 1, 8, 15 OF CY
     Route: 042
     Dates: start: 20170320
  27. PIXANTRONE [Suspect]
     Active Substance: PIXANTRONE
     Dosage: CYCLE 1
     Route: 042
     Dates: start: 20161128
  28. METOPROLOL. [Concomitant]
     Active Substance: METOPROLOL
     Dosage: PER DAY
     Route: 065
     Dates: start: 20170807

REACTIONS (1)
  - Neuroendocrine carcinoma of the skin [Recovered/Resolved with Sequelae]

NARRATIVE: CASE EVENT DATE: 20170919
